FAERS Safety Report 15043732 (Version 3)
Quarter: 2018Q3

REPORT INFORMATION
  Report Type: Not Available
  Country: US (occurrence: US)
  Receive Date: 20180621
  Receipt Date: 20180716
  Transmission Date: 20181010
  Serious: Yes (Hospitalization)
  Sender: FDA-Public Use
  Company Number: US-NEUROCRINE BIOSCIENCES INC.-2018NBI01778

PATIENT
  Age: 39 Year
  Sex: Female

DRUGS (8)
  1. PRAZOSIN. [Concomitant]
     Active Substance: PRAZOSIN
     Indication: NIGHTMARE
     Dosage: 1?2 CAPSULES BY MOUTH AT BEDTIME AS NEEDED
     Dates: start: 20180517
  2. BENZTROPINE. [Concomitant]
     Active Substance: BENZTROPINE
     Indication: EXTRAPYRAMIDAL DISORDER
     Dosage: 1 TAB AT BEDTIME AS NEEDED
     Route: 048
     Dates: start: 20180619
  3. HYDROXYZINE PAMOATE. [Concomitant]
     Active Substance: HYDROXYZINE PAMOATE
     Indication: ANXIETY
     Dosage: 1 CAPSULE ONCE A DAY AS NEEDED
     Route: 048
     Dates: start: 20180629
  4. INGREZZA [Suspect]
     Active Substance: VALBENAZINE
     Dosage: 8 AM
     Route: 048
     Dates: start: 20180619
  5. FLUOXETINE [Concomitant]
     Active Substance: FLUOXETINE HYDROCHLORIDE
     Indication: DEPRESSION
     Route: 048
     Dates: start: 20180619
  6. INGREZZA [Suspect]
     Active Substance: VALBENAZINE
     Indication: TARDIVE DYSKINESIA
     Route: 048
     Dates: start: 20180309, end: 20180605
  7. LATUDA [Concomitant]
     Active Substance: LURASIDONE HYDROCHLORIDE
     Indication: AFFECTIVE DISORDER
  8. SEROQUEL [Concomitant]
     Active Substance: QUETIAPINE FUMARATE
     Indication: AFFECTIVE DISORDER
     Dosage: AT BEDTIME
     Route: 048
     Dates: start: 20180619

REACTIONS (4)
  - Suicidal ideation [Recovered/Resolved]
  - Laceration [Recovered/Resolved]
  - Intentional self-injury [Recovered/Resolved]
  - Psychiatric symptom [Recovered/Resolved]

NARRATIVE: CASE EVENT DATE: 20180605
